FAERS Safety Report 15868339 (Version 2)
Quarter: 2019Q1

REPORT INFORMATION
  Report Type: Spontaneous
  Country: ES (occurrence: ES)
  Receive Date: 20190125
  Receipt Date: 20190205
  Transmission Date: 20190417
  Serious: Yes (Other)
  Sender: FDA-Public Use
  Company Number: ES-ASTRAZENECA-2019SE13277

PATIENT
  Age: 56 Year
  Sex: Female
  Weight: 75.7 kg

DRUGS (7)
  1. FULVESTRANT. [Suspect]
     Active Substance: FULVESTRANT
     Indication: BREAST CANCER
     Route: 030
     Dates: start: 2017, end: 201711
  2. EVEROLIMUS. [Suspect]
     Active Substance: EVEROLIMUS
     Indication: BREAST CANCER
     Route: 065
     Dates: start: 20161227
  3. TERBASMIN [Concomitant]
     Active Substance: TERBUTALINE SULFATE
     Indication: ASTHMA
     Dosage: AS REQUIRED
  4. PACLITAXEL. [Suspect]
     Active Substance: PACLITAXEL
     Indication: BREAST CANCER
     Route: 065
  5. CAPECITABINE. [Suspect]
     Active Substance: CAPECITABINE
     Indication: BREAST CANCER
     Route: 065
     Dates: start: 201711, end: 201812
  6. BEVACIZUMAB. [Suspect]
     Active Substance: BEVACIZUMAB
     Indication: BREAST CANCER
     Route: 065
     Dates: start: 201711, end: 201711
  7. EXEMESTANE. [Suspect]
     Active Substance: EXEMESTANE
     Indication: BREAST CANCER
     Route: 065
     Dates: start: 20161227

REACTIONS (2)
  - Neoplasm progression [Unknown]
  - Palmar-plantar erythrodysaesthesia syndrome [Unknown]
